FAERS Safety Report 8972022 (Version 3)
Quarter: 2013Q1

REPORT INFORMATION
  Report Type: Spontaneous
  Country: CO (occurrence: CO)
  Receive Date: 20121218
  Receipt Date: 20130225
  Transmission Date: 20140127
  Serious: Yes (Hospitalization, Other)
  Sender: FDA-Public Use
  Company Number: PHHY2012CO115823

PATIENT
  Age: 9 Year
  Sex: Female
  Weight: 37 kg

DRUGS (1)
  1. OMNITROPE [Suspect]
     Indication: BODY HEIGHT BELOW NORMAL
     Dosage: 1.8 MG
     Route: 058
     Dates: start: 20121108, end: 20121208

REACTIONS (7)
  - Headache [Recovered/Resolved]
  - Viral infection [Recovered/Resolved]
  - Nausea [Recovered/Resolved]
  - Vomiting [Recovered/Resolved]
  - Gaze palsy [Recovered/Resolved]
  - Eye disorder [Recovered/Resolved]
  - Benign intracranial hypertension [Recovered/Resolved]
